FAERS Safety Report 4610450-6 (Version None)
Quarter: 2005Q1

REPORT INFORMATION
  Report Type: 
  Country: None (occurrence: None)
  Receive Date: 20050314
  Receipt Date: 20050304
  Transmission Date: 20050727
  Serious: Yes (Hospitalization)
  Sender: FDA-Public Use
  Company Number: 212826

PATIENT
  Age: 72 Year
  Sex: Male

DRUGS (7)
  1. XOLAIR (OLMALIZUMAB) PWDR + SOLVENT,INJECTION SOLN, 150MG [Suspect]
     Dosage: 375 MG, Q2W, SUBCUTANEOUS
     Route: 058
     Dates: start: 20041204, end: 20041216
  2. XOLAIR (OLMALIZUMAB) PWDR + SOLVENT,INJECTION SOLN, 150MG [Suspect]
     Dosage: 375 MG, Q2W, SUBCUTANEOUS
     Route: 058
     Dates: start: 20041104, end: 20041230
  3. ADVAIR (FLUTICASONE PROPIONATE, SALMETEROL XINAFOATE) [Concomitant]
  4. ALBUTEROL (ALBUTEROL, ALBUTEROL SULFATE) [Concomitant]
  5. ATROVENT [Concomitant]
  6. PRILOSEC [Concomitant]
  7. SPIRIVA [Concomitant]

REACTIONS (4)
  - EJECTION FRACTION DECREASED [None]
  - MYOPERICARDITIS [None]
  - PERICARDIAL EFFUSION [None]
  - PHARMACEUTICAL PRODUCT COMPLAINT [None]
